FAERS Safety Report 18454167 (Version 1)
Quarter: 2020Q4

REPORT INFORMATION
  Report Type: Spontaneous
  Country: CA (occurrence: CA)
  Receive Date: 20201102
  Receipt Date: 20201102
  Transmission Date: 20210114
  Serious: Yes (Other)
  Sender: FDA-Public Use
  Company Number: CA-JNJFOC-20201040634

PATIENT
  Age: 30 Year
  Sex: Female
  Weight: 72 kg

DRUGS (7)
  1. INFLIXIMAB, RECOMBINANT [Suspect]
     Active Substance: INFLIXIMAB
     Indication: PRODUCT USED FOR UNKNOWN INDICATION
     Route: 042
  2. IRON [Concomitant]
     Active Substance: IRON
     Route: 065
  3. VITAMIN D3 [Concomitant]
     Active Substance: CHOLECALCIFEROL
     Route: 065
  4. PREDNISONE. [Concomitant]
     Active Substance: PREDNISONE
     Route: 065
  5. FOLIC ACID W/VITAMIN B12 [Concomitant]
  6. ANOVLAR [Concomitant]
     Active Substance: ETHINYL ESTRADIOL\NORETHINDRONE
     Route: 065
  7. PREDNISONE. [Concomitant]
     Active Substance: PREDNISONE
     Route: 048

REACTIONS (15)
  - Rectal haemorrhage [Unknown]
  - Nocturia [Unknown]
  - Decreased appetite [Unknown]
  - Cough [Unknown]
  - Off label use [Unknown]
  - Condition aggravated [Unknown]
  - Drug specific antibody [Unknown]
  - Bronchitis [Unknown]
  - Secretion discharge [Unknown]
  - Somnolence [Unknown]
  - Gastrointestinal motility disorder [Unknown]
  - Malaise [Unknown]
  - Productive cough [Unknown]
  - Body temperature fluctuation [Unknown]
  - Micturition urgency [Unknown]
